FAERS Safety Report 8320736-X (Version None)
Quarter: 2012Q2

REPORT INFORMATION
  Report Type: 
  Country: None (occurrence: None)
  Receive Date: 20120430
  Receipt Date: 20120418
  Transmission Date: 20120825
  Serious: Yes (Hospitalization, Other)
  Sender: FDA-Public Use
  Company Number: JP-ELI_LILLY_AND_COMPANY-JP201110005051

PATIENT
  Sex: Female

DRUGS (2)
  1. FORTEO [Suspect]
     Dosage: UNK
     Route: 058
     Dates: start: 20111201, end: 20120201
  2. FORTEO [Suspect]
     Dosage: UNK
     Route: 058
     Dates: start: 20110927, end: 20111010

REACTIONS (3)
  - PYREXIA [None]
  - INTENTIONAL DRUG MISUSE [None]
  - FRACTURE [None]
